FAERS Safety Report 7948612-2 (Version None)
Quarter: 2011Q4

REPORT INFORMATION
  Report Type: 
  Country: None (occurrence: None)
  Receive Date: 20111130
  Receipt Date: 20111123
  Transmission Date: 20120403
  Serious: Yes (Other)
  Sender: FDA-Public Use
  Company Number: US-AMGEN-USASP2011062057

PATIENT
  Age: 70 Year
  Sex: Female

DRUGS (4)
  1. ENBREL [Suspect]
     Indication: RHEUMATOID ARTHRITIS
     Dosage: 50 MG, QWK
     Dates: start: 20110811, end: 20111107
  2. FLU [Concomitant]
     Dosage: UNK
  3. METHOTREXATE [Concomitant]
     Dosage: UNK
     Dates: start: 20110601
  4. VACCINES [Concomitant]
     Dosage: UNK

REACTIONS (7)
  - BREAST RECONSTRUCTION [None]
  - COUGH [None]
  - NASAL CONGESTION [None]
  - PYREXIA [None]
  - INJECTION SITE MASS [None]
  - THROAT TIGHTNESS [None]
  - CHILLS [None]
